FAERS Safety Report 17693738 (Version 3)
Quarter: 2020Q3

REPORT INFORMATION
  Report Type: Report from Study
  Country: US (occurrence: US)
  Receive Date: 20200422
  Receipt Date: 20200808
  Transmission Date: 20201102
  Serious: Yes (Other)
  Sender: FDA-Public Use
  Company Number: NVSC2020US107028

PATIENT
  Sex: Female

DRUGS (1)
  1. COSENTYX [Suspect]
     Active Substance: SECUKINUMAB
     Indication: ANKYLOSING SPONDYLITIS
     Dosage: 300 MG, QMO
     Route: 058

REACTIONS (5)
  - Ankylosing spondylitis [Unknown]
  - Urticaria [Recovered/Resolved]
  - Arthralgia [Not Recovered/Not Resolved]
  - Hypersensitivity [Recovered/Resolved]
  - Anxiety [Recovered/Resolved]
